FAERS Safety Report 5705741-1 (Version None)
Quarter: 2008Q2

REPORT INFORMATION
  Report Type: 
  Country: None (occurrence: None)
  Receive Date: 20080415
  Receipt Date: 20080407
  Transmission Date: 20081010
  Serious: Yes (Other)
  Sender: FDA-Public Use
  Company Number: B0516024A

PATIENT
  Age: 4 Year
  Sex: Male

DRUGS (3)
  1. BECOTIDE [Suspect]
     Indication: ASTHMA
     Route: 065
  2. FLUTICASONE PROPIONATE [Suspect]
     Indication: ASTHMA
     Dosage: 1PUFF TWICE PER DAY
     Route: 055
  3. INTAL [Concomitant]
     Route: 065

REACTIONS (1)
  - AGGRESSION [None]
